FAERS Safety Report 8167730-X (Version None)
Quarter: 2012Q1

REPORT INFORMATION
  Report Type: 
  Country: None (occurrence: None)
  Receive Date: 20120227
  Receipt Date: 20120218
  Transmission Date: 20120608
  Serious: Yes (Other)
  Sender: FDA-Public Use
  Company Number: ES-ROCHE-1041531

PATIENT
  Age: 75 Year
  Sex: Female

DRUGS (2)
  1. BONIVA [Suspect]
     Indication: OSTEOPOROSIS
     Route: 048
     Dates: start: 20120217, end: 20120217
  2. NAVIXEN (SPAIN) [Concomitant]
     Indication: HYPERTENSION
     Route: 048

REACTIONS (1)
  - VIITH NERVE PARALYSIS [None]
